FAERS Safety Report 7371874-X (Version None)
Quarter: 2011Q1

REPORT INFORMATION
  Report Type: 
  Country: None (occurrence: None)
  Receive Date: 20110324
  Receipt Date: 20110318
  Transmission Date: 20110831
  Serious: Yes (Other)
  Sender: FDA-Public Use
  Company Number: BR-ROCHE-766497

PATIENT
  Sex: Female
  Weight: 56 kg

DRUGS (2)
  1. METHOTREXATE [Concomitant]
  2. TOCILIZUMAB [Suspect]
     Dosage: FORM: INFUSION
     Route: 042
     Dates: start: 20100901

REACTIONS (3)
  - PAIN [None]
  - OEDEMA PERIPHERAL [None]
  - HYPOAESTHESIA [None]
